FAERS Safety Report 9097873 (Version 2)
Quarter: 2013Q1

REPORT INFORMATION
  Report Type: Spontaneous
  Country: TW (occurrence: TW)
  Receive Date: 20130212
  Receipt Date: 20130219
  Transmission Date: 20140127
  Serious: Yes (Hospitalization)
  Sender: FDA-Public Use
  Company Number: TW-AMGEN-TWNSP2013008461

PATIENT
  Age: 70 Year
  Sex: Female

DRUGS (11)
  1. ENBREL [Suspect]
     Indication: RHEUMATOID ARTHRITIS
     Dosage: 2 DF, 2X/WEEK
     Route: 058
     Dates: start: 20110315, end: 20121219
  2. ENBREL [Suspect]
     Dosage: 1 DF, WEEKLY
     Route: 058
     Dates: start: 20130115
  3. SALAZOPYRIN [Concomitant]
     Dosage: 1000 MG, 3X/DAY
     Route: 048
  4. CELEBREX [Concomitant]
     Dosage: 200 MG, 2X/DAY
     Route: 048
  5. METHOTREXATE [Concomitant]
     Indication: ARTHRALGIA
     Dosage: UNK
  6. PREDNISOLONE [Concomitant]
     Indication: ARTHRALGIA
     Dosage: UNK
  7. METISONE [Concomitant]
     Dosage: 4 MG, 2X/DAY
     Route: 048
  8. MYCOSTEN                           /00212501/ [Concomitant]
     Dosage: UNK
     Route: 061
  9. SANDIMMUN [Concomitant]
     Dosage: 1 DF, 2X/DAY
     Route: 048
  10. NORFLEX                            /00018303/ [Concomitant]
     Dosage: 1 DF, AT BED TIME
     Route: 048
  11. ARHEUMA [Concomitant]
     Dosage: 1 DF, 1X/DAY
     Route: 048

REACTIONS (2)
  - Rheumatoid arthritis [Unknown]
  - Osteoarthritis [Unknown]
